FAERS Safety Report 25372078 (Version 1)
Quarter: 2025Q2

REPORT INFORMATION
  Report Type: Spontaneous
  Country: DE (occurrence: DE)
  Receive Date: 20250529
  Receipt Date: 20250529
  Transmission Date: 20250717
  Serious: Yes (Other)
  Sender: AMGEN
  Company Number: DE-002147023-NVSC2025DE084432

PATIENT
  Age: 22 Year
  Sex: Female

DRUGS (2)
  1. AIMOVIG [Suspect]
     Active Substance: ERENUMAB-AOOE
     Indication: Migraine
     Dosage: 140 MG, QMO
     Route: 058
     Dates: start: 202503, end: 202505
  2. PIRITRAMIDE [Concomitant]
     Active Substance: PIRITRAMIDE
     Indication: Product used for unknown indication
     Route: 065

REACTIONS (10)
  - Rhabdomyolysis [Unknown]
  - Toxicity to various agents [Unknown]
  - Dyspnoea [Unknown]
  - Disease recurrence [Unknown]
  - Migraine without aura [Unknown]
  - Photophobia [Unknown]
  - Hyperacusis [Unknown]
  - Ocular discomfort [Unknown]
  - Vomiting [Unknown]
  - Nausea [Unknown]

NARRATIVE: CASE EVENT DATE: 20250501
